FAERS Safety Report 18601261 (Version 1)
Quarter: 2020Q4

REPORT INFORMATION
  Report Type: Spontaneous
  Country: US (occurrence: US)
  Receive Date: 20201210
  Receipt Date: 20201210
  Transmission Date: 20210114
  Serious: No
  Sender: FDA-Public Use
  Company Number: US-AMERICAN REGENT INC-2020002095

PATIENT
  Age: 4 Year
  Sex: Male

DRUGS (5)
  1. VENOFER [Suspect]
     Active Substance: IRON SUCROSE
     Indication: IRON DEFICIENCY ANAEMIA
     Dosage: 76 MILLIGRAM (DILUTION OF 3.8 ML IN 38 ML STERILE 0.9 % NACL SOLUTION), SINGLE
     Route: 042
     Dates: start: 20200826, end: 20200826
  2. VENOFER [Suspect]
     Active Substance: IRON SUCROSE
     Dosage: 68 MILLIGRAM DILUTED IN 34 ML NS, SINGLE
     Route: 065
     Dates: start: 20200305, end: 20200305
  3. VENOFER [Suspect]
     Active Substance: IRON SUCROSE
     Dosage: 65 MILLIGRAM DILUTED IN  IN 32.5 ML NS,SINGLE
     Route: 065
     Dates: start: 20200327, end: 20200327
  4. FERROUS SULFATE. [Concomitant]
     Active Substance: FERROUS SULFATE
     Indication: PRODUCT USED FOR UNKNOWN INDICATION
     Dosage: UNK
     Route: 065
  5. REMICADE [Concomitant]
     Active Substance: INFLIXIMAB
     Indication: PRODUCT USED FOR UNKNOWN INDICATION
     Dosage: UNK
     Route: 065

REACTIONS (2)
  - Infusion site discolouration [Recovered/Resolved]
  - Infusion site bruising [Recovered/Resolved]

NARRATIVE: CASE EVENT DATE: 20200826
